FAERS Safety Report 6208042-0 (Version None)
Quarter: 2009Q2

REPORT INFORMATION
  Report Type: 
  Country: None (occurrence: None)
  Receive Date: 20090529
  Receipt Date: 20090312
  Transmission Date: 20091009
  Serious: No
  Sender: FDA-Public Use
  Company Number: US-KINGPHARMUSA00001-K200900275

PATIENT
  Sex: Female
  Weight: 61.224 kg

DRUGS (2)
  1. FLECTOR [Suspect]
     Indication: NECK PAIN
     Dosage: 1 PATCH, SINGLE
     Route: 061
     Dates: start: 20090311, end: 20090311
  2. ANTIHYPERTENSIVES [Concomitant]

REACTIONS (2)
  - APPLICATION SITE ERYTHEMA [None]
  - APPLICATION SITE IRRITATION [None]
